FAERS Safety Report 21580572 (Version 4)
Quarter: 2023Q1

REPORT INFORMATION
  Report Type: Report from Study
  Country: US (occurrence: US)
  Receive Date: 20221111
  Receipt Date: 20230117
  Transmission Date: 20230417
  Serious: No
  Sender: FDA-Public Use
  Company Number: US-ABBVIE-4137134

PATIENT
  Age: 20 Year
  Sex: Male

DRUGS (2)
  1. HUMIRA [Suspect]
     Active Substance: ADALIMUMAB
     Indication: Psoriasis
     Dosage: CITRATE FREE
     Route: 058
  2. HUMIRA [Suspect]
     Active Substance: ADALIMUMAB
     Indication: Colitis ulcerative
     Dosage: CITRATE FREE
     Route: 058
     Dates: start: 20220527

REACTIONS (9)
  - Condition aggravated [Unknown]
  - Therapeutic product effect incomplete [Unknown]
  - Abdominal discomfort [Not Recovered/Not Resolved]
  - Nasopharyngitis [Unknown]
  - Haematochezia [Unknown]
  - Anal incontinence [Unknown]
  - Constipation [Unknown]
  - Unevaluable event [Not Recovered/Not Resolved]
  - Adverse food reaction [Not Recovered/Not Resolved]

NARRATIVE: CASE EVENT DATE: 20220527
